FAERS Safety Report 21186447 (Version 1)
Quarter: 2022Q3

REPORT INFORMATION
  Report Type: Report from Study
  Country: US (occurrence: US)
  Receive Date: 20220808
  Receipt Date: 20220808
  Transmission Date: 20221027
  Serious: Yes (Other)
  Sender: FDA-Public Use
  Company Number: US-TAKEDA-US202011145

PATIENT
  Sex: Male

DRUGS (1)
  1. HUMAN IMMUNOGLOBULIN G\HYALURONIDASE RECOMBINANT HUMAN [Suspect]
     Active Substance: HUMAN IMMUNOGLOBULIN G\HYALURONIDASE RECOMBINANT HUMAN
     Indication: Primary immunodeficiency syndrome
     Dosage: UNK
     Route: 065

REACTIONS (8)
  - Dementia Alzheimer^s type [Unknown]
  - Unevaluable event [Unknown]
  - Bronchitis [Unknown]
  - Drug hypersensitivity [Unknown]
  - Memory impairment [Unknown]
  - Spinal pain [Unknown]
  - Spinal disorder [Recovering/Resolving]
  - Inappropriate schedule of product administration [Unknown]
